FAERS Safety Report 10080036 (Version 1)
Quarter: 2014Q2

REPORT INFORMATION
  Report Type: Spontaneous
  Country: GB (occurrence: GB)
  Receive Date: 20140415
  Receipt Date: 20140415
  Transmission Date: 20141212
  Serious: Yes (Other)
  Sender: FDA-Public Use
  Company Number: PHFR2014GB002770

PATIENT
  Age: 64 Year
  Sex: Female
  Weight: 58 kg

DRUGS (5)
  1. TERBINAFINE [Suspect]
     Indication: ONYCHOMYCOSIS
     Dosage: 250 MG, UNK
     Route: 048
     Dates: start: 20140320, end: 20140321
  2. QVAR [Concomitant]
     Dosage: UNK UKN, UNK
     Route: 055
  3. ALENDRONIC ACID [Concomitant]
     Indication: OSTEOPOROSIS
     Dosage: 70 MG, UNK
     Route: 048
     Dates: start: 2008
  4. SALBUTAMOL [Concomitant]
     Dosage: UNK UKN, UNK
     Route: 055
  5. NAPROXEN [Concomitant]
     Indication: OSTEOARTHRITIS
     Dosage: 250 MG, QD
     Route: 048

REACTIONS (5)
  - Dyspnoea [Recovering/Resolving]
  - Feeling hot [Recovering/Resolving]
  - Swelling face [Recovering/Resolving]
  - Paraesthesia [Recovering/Resolving]
  - Rash macular [Recovering/Resolving]
